FAERS Safety Report 5062235-7 (Version None)
Quarter: 2006Q3

REPORT INFORMATION
  Report Type: 
  Country: None (occurrence: None)
  Receive Date: 20060721
  Receipt Date: 20060707
  Transmission Date: 20061208
  Serious: Yes (Hospitalization)
  Sender: FDA-Public Use
  Company Number: MEDI-0004752

PATIENT
  Age: 16 Month

DRUGS (5)
  1. SYNAGIS [Suspect]
     Indication: ANTIVIRAL PROPHYLAXIS
     Dosage: 135 MG, INTRAMUSCULAR, SEE IMAGE
     Route: 030
     Dates: start: 20051025, end: 20060214
  2. SYNAGIS [Suspect]
     Indication: ANTIVIRAL PROPHYLAXIS
     Dosage: 135 MG, INTRAMUSCULAR, SEE IMAGE
     Route: 030
     Dates: start: 20051025
  3. SYNAGIS [Suspect]
     Indication: ANTIVIRAL PROPHYLAXIS
     Dosage: 135 MG, INTRAMUSCULAR, SEE IMAGE
     Route: 030
     Dates: start: 20051122
  4. SYNAGIS [Suspect]
     Indication: ANTIVIRAL PROPHYLAXIS
     Dosage: 135 MG, INTRAMUSCULAR, SEE IMAGE
     Route: 030
     Dates: start: 20051202
  5. SYNAGIS [Suspect]
     Indication: ANTIVIRAL PROPHYLAXIS
     Dosage: 135 MG, INTRAMUSCULAR, SEE IMAGE
     Route: 030
     Dates: start: 20060117

REACTIONS (1)
  - BREATH HOLDING [None]
